FAERS Safety Report 11762054 (Version 1)
Quarter: 2015Q4

REPORT INFORMATION
  Report Type: Spontaneous
  Country: US (occurrence: US)
  Receive Date: 20151120
  Receipt Date: 20151120
  Transmission Date: 20160304
  Serious: Yes (Death, Life-Threatening)
  Sender: FDA-Public Use
  Company Number: US-ROXANE LABORATORIES, INC.-2015-RO-01936RO

PATIENT
  Age: 15 Year
  Sex: Female
  Weight: 41 kg

DRUGS (1)
  1. LIDOCAINE. [Suspect]
     Active Substance: LIDOCAINE
     Indication: STOMATITIS
     Route: 048

REACTIONS (5)
  - Brain death [Fatal]
  - Intentional overdose [Fatal]
  - Seizure [Recovered/Resolved]
  - Cardiac arrest [Recovered/Resolved]
  - Toxicity to various agents [Unknown]
